FAERS Safety Report 17925614 (Version 10)
Quarter: 2021Q4

REPORT INFORMATION
  Report Type: Report from Study
  Country: KR (occurrence: KR)
  Receive Date: 20200622
  Receipt Date: 20211004
  Transmission Date: 20220303
  Serious: Yes (Hospitalization, Other)
  Sender: FDA-Public Use
  Company Number: KR-BIOGEN-2020BI00887738

PATIENT
  Age: 30 Year
  Sex: Male
  Weight: 115 kg

DRUGS (26)
  1. TECFIDERA [Suspect]
     Active Substance: DIMETHYL FUMARATE
     Indication: Relapsing-remitting multiple sclerosis
     Route: 048
     Dates: start: 20200525, end: 20200531
  2. TECFIDERA [Suspect]
     Active Substance: DIMETHYL FUMARATE
     Indication: Relapsing-remitting multiple sclerosis
     Dosage: MAINTENANCE DOSE
     Route: 048
     Dates: start: 20200601
  3. TECFIDERA [Suspect]
     Active Substance: DIMETHYL FUMARATE
     Dosage: MAINTENANCE DOSE
     Route: 048
     Dates: start: 20210601
  4. ASPIRIN [Concomitant]
     Active Substance: ASPIRIN
     Indication: Carotid artery thrombosis
     Route: 048
     Dates: start: 20200327
  5. CLOPIDOGREL [Concomitant]
     Active Substance: CLOPIDOGREL BISULFATE
     Indication: Prophylaxis
     Route: 048
     Dates: start: 20200327, end: 20200628
  6. clogrel [Concomitant]
     Indication: Prophylaxis
     Route: 048
     Dates: start: 20200327, end: 20200628
  7. DEXILANT [Concomitant]
     Active Substance: DEXLANSOPRAZOLE
     Indication: Prophylaxis
     Route: 048
     Dates: start: 20200610, end: 20201025
  8. LAMINA-G [Concomitant]
     Indication: Prophylaxis
     Route: 048
     Dates: start: 20200610, end: 20200630
  9. LAMINA-G [Concomitant]
     Route: 048
     Dates: start: 20200610, end: 20200630
  10. LAFUTIDINE [Concomitant]
     Active Substance: LAFUTIDINE
     Indication: Prophylaxis
     Route: 048
     Dates: start: 20200609, end: 20200611
  11. LAFUTIDINE [Concomitant]
     Active Substance: LAFUTIDINE
     Route: 048
     Dates: start: 20200609, end: 20200611
  12. PLAVIX [Concomitant]
     Active Substance: CLOPIDOGREL BISULFATE
     Indication: Prophylaxis
     Route: 048
     Dates: start: 20200611, end: 20200616
  13. PLAVIX [Concomitant]
     Active Substance: CLOPIDOGREL BISULFATE
     Route: 048
     Dates: start: 20200629, end: 20200927
  14. HERBALS [Concomitant]
     Active Substance: HERBALS
     Indication: Prophylaxis
     Route: 048
     Dates: start: 20200613, end: 20200630
  15. HERBALS [Concomitant]
     Active Substance: HERBALS
     Route: 048
     Dates: start: 20200613, end: 20200630
  16. CELLION [Concomitant]
     Indication: Product used for unknown indication
     Route: 048
     Dates: start: 20201215, end: 20210125
  17. CELLION [Concomitant]
     Route: 048
     Dates: start: 20201215, end: 20210125
  18. ALLERGINON [Concomitant]
     Indication: Product used for unknown indication
     Route: 048
     Dates: start: 20201215, end: 20210125
  19. NAITRAL [Concomitant]
     Indication: Product used for unknown indication
     Route: 062
     Dates: start: 20201215, end: 20210125
  20. METHYLPREDNISOLONE ACEPONATE [Concomitant]
     Active Substance: METHYLPREDNISOLONE ACEPONATE
     Indication: Product used for unknown indication
     Route: 062
     Dates: start: 20201215, end: 20210125
  21. KALOMIN S [Concomitant]
     Indication: Product used for unknown indication
     Route: 048
     Dates: start: 20201223, end: 20210105
  22. UMCKAMIN [Concomitant]
     Indication: Prophylaxis
     Route: 048
     Dates: start: 20201223, end: 20210105
  23. UMCKAMIN [Concomitant]
     Route: 048
     Dates: start: 20201223, end: 20210105
  24. NOLTEC [Concomitant]
     Indication: Prophylaxis
     Route: 048
     Dates: start: 20201223, end: 20210105
  25. POLAPREZINC [Concomitant]
     Active Substance: POLAPREZINC
     Indication: Prophylaxis
     Route: 048
     Dates: start: 20201223, end: 20210105
  26. POLAPREZINC [Concomitant]
     Active Substance: POLAPREZINC
     Route: 048
     Dates: start: 20201223, end: 20210105

REACTIONS (7)
  - Multiple sclerosis relapse [Recovered/Resolved]
  - Hepatitis toxic [Recovered/Resolved]
  - Headache [Recovered/Resolved]
  - White blood cell disorder [Recovered/Resolved]
  - Blood creatinine abnormal [Recovered/Resolved]
  - Lymphocyte count abnormal [Recovered/Resolved]
  - Alanine aminotransferase increased [Recovered/Resolved]

NARRATIVE: CASE EVENT DATE: 20200601
